FAERS Safety Report 5939832-7 (Version None)
Quarter: 2008Q4

REPORT INFORMATION
  Report Type: 
  Country: None (occurrence: None)
  Receive Date: 20081031
  Receipt Date: 20081031
  Transmission Date: 20090506
  Serious: Yes (Disabling, Other)
  Sender: FDA-Public Use
  Company Number: None

PATIENT
  Sex: Male
  Weight: 86.1834 kg

DRUGS (4)
  1. HUMAPEN MEMOIR 3ML INSULIN PEN ELI LILLY [Suspect]
     Indication: DIABETES MELLITUS
     Dates: start: 20071106, end: 20081030
  2. NOVAPEN 3 [Concomitant]
  3. DISETRONIC PENS [Concomitant]
  4. INDUO PEN [Concomitant]

REACTIONS (1)
  - DEVICE MALFUNCTION [None]
